FAERS Safety Report 11719607 (Version 1)
Quarter: 2015Q4

REPORT INFORMATION
  Report Type: Spontaneous
  Country: US (occurrence: None)
  Receive Date: 20151109
  Receipt Date: 20151109
  Transmission Date: 20160304
  Serious: Yes (Other)
  Sender: FDA-Public Use
  Company Number: None

PATIENT
  Age: 30 Year
  Sex: Female
  Weight: 70.31 kg

DRUGS (6)
  1. LITHIUM. [Concomitant]
     Active Substance: LITHIUM
  2. LAMOTRIGINE. [Suspect]
     Active Substance: LAMOTRIGINE
     Indication: BIPOLAR DISORDER
     Route: 048
     Dates: start: 20120901, end: 20150315
  3. LAMOTRIGINE. [Suspect]
     Active Substance: LAMOTRIGINE
     Indication: AFFECTIVE DISORDER
     Route: 048
     Dates: start: 20120901, end: 20150315
  4. WOMEN^S CHOICE MULTI-VITAMIN [Concomitant]
  5. BUPROPION. [Concomitant]
     Active Substance: BUPROPION
  6. COPPER IUD [Concomitant]
     Active Substance: COPPER\INTRAUTERINE DEVICE

REACTIONS (6)
  - Menstruation irregular [None]
  - Memory impairment [None]
  - Thinking abnormal [None]
  - Disturbance in attention [None]
  - Drug interaction [None]
  - Pregnancy on oral contraceptive [None]

NARRATIVE: CASE EVENT DATE: 20140912
